FAERS Safety Report 7518546-6 (Version None)
Quarter: 2011Q2

REPORT INFORMATION
  Report Type: 
  Country: None (occurrence: None)
  Receive Date: 20110523
  Receipt Date: 20110511
  Transmission Date: 20111010
  Serious: Yes (Death)
  Sender: FDA-Public Use
  Company Number: US-2011-10294

PATIENT
  Sex: Male

DRUGS (2)
  1. BUSULFEX [Suspect]
     Dosage: , INTRAVENOUS
     Route: 042
  2. CYCLOPHOSPHAMIDE [Concomitant]

REACTIONS (1)
  - PNEUMONITIS [None]
